FAERS Safety Report 18592858 (Version 1)
Quarter: 2020Q4

REPORT INFORMATION
  Report Type: Spontaneous
  Country: US (occurrence: US)
  Receive Date: 20201209
  Receipt Date: 20201209
  Transmission Date: 20210114
  Serious: Yes (Hospitalization, Other)
  Sender: FDA-Public Use
  Company Number: US-LUPIN PHARMACEUTICALS INC.-2020-09966

PATIENT
  Age: 27 Year
  Sex: Female

DRUGS (15)
  1. GLUCAGON. [Concomitant]
     Active Substance: GLUCAGON
     Dosage: 2 MILLIGRAM
     Route: 030
  2. HYDROCORTISONE. [Suspect]
     Active Substance: HYDROCORTISONE
     Dosage: 100 MILLIGRAM, TID
     Route: 042
  3. DEXTROSE. [Concomitant]
     Active Substance: DEXTROSE
     Dosage: 300 MILLILITER PER HOUR (INFUSION DEXTTOSE 10)
     Route: 042
  4. DULOXETINE. [Concomitant]
     Active Substance: DULOXETINE
     Indication: PRODUCT USED FOR UNKNOWN INDICATION
     Dosage: 120 MILLIGRAM, QD
     Route: 065
  5. LITHIUM. [Concomitant]
     Active Substance: LITHIUM
     Indication: PRODUCT USED FOR UNKNOWN INDICATION
     Dosage: 900 MILLIGRAM, QD
     Route: 065
  6. GLUCAGON. [Concomitant]
     Active Substance: GLUCAGON
     Indication: HYPOGLYCAEMIA
     Dosage: 1 MILLIGRAM
     Route: 030
  7. DEXTROSE. [Concomitant]
     Active Substance: DEXTROSE
     Indication: HYPOGLYCAEMIA
     Dosage: DEXTROSE-50-RECEIVED IN TWO 50-GRAM AMPULES
     Route: 042
  8. BUPROPION. [Concomitant]
     Active Substance: BUPROPION
     Indication: PRODUCT USED FOR UNKNOWN INDICATION
     Dosage: 300 MILLIGRAM, QD
     Route: 065
  9. MIRTAZAPINE. [Concomitant]
     Active Substance: MIRTAZAPINE
     Indication: PRODUCT USED FOR UNKNOWN INDICATION
     Dosage: 30 MILLIGRAM, QD-AT BED TIME
     Route: 065
  10. PRAZOSIN. [Concomitant]
     Active Substance: PRAZOSIN
     Indication: PRODUCT USED FOR UNKNOWN INDICATION
     Dosage: 5 MILLIGRAM, QD-AT BED TIME
     Route: 065
  11. GLUCAGON. [Concomitant]
     Active Substance: GLUCAGON
     Dosage: 4 MILLIGRAM
     Route: 030
  12. HYDROCORTISONE. [Suspect]
     Active Substance: HYDROCORTISONE
     Indication: HYPOGLYCAEMIA
     Dosage: 100 MILLIGRAM-A TRIAL DOSE
     Route: 042
  13. TRAZODONE [Concomitant]
     Active Substance: TRAZODONE HYDROCHLORIDE
     Indication: PRODUCT USED FOR UNKNOWN INDICATION
     Dosage: 150 MILLIGRAM, QD (AT BED TIME)
     Route: 065
  14. LANTUS [Concomitant]
     Active Substance: INSULIN GLARGINE
     Indication: SUICIDE ATTEMPT
     Dosage: 3 DOSAGE FORM (900 UNITS (U-100) (RECEIVED THREE FULL INSULIN U-100 PENS) (300 UNITS EACH))
     Route: 058
  15. GLUCAGON. [Concomitant]
     Active Substance: GLUCAGON
     Dosage: 1 MILLIGRAM (INITIALLY, RECEIVED THREE DOSES; REQUIRED TOTAL ELEVEN SUCH DOSES)
     Route: 030

REACTIONS (1)
  - Hyperglycaemia [Recovered/Resolved]
